FAERS Safety Report 22132201 (Version 1)
Quarter: 2023Q1

REPORT INFORMATION
  Report Type: Spontaneous
  Country: US (occurrence: US)
  Receive Date: 20230323
  Receipt Date: 20230323
  Transmission Date: 20230417
  Serious: No
  Sender: FDA-Public Use
  Company Number: US-PERRIGO-22US016306

PATIENT
  Sex: Female

DRUGS (1)
  1. PSEUDOEPHEDRINE HYDROCHLORIDE [Suspect]
     Active Substance: PSEUDOEPHEDRINE HYDROCHLORIDE
     Indication: Rhinorrhoea
     Dosage: UNKNOWN, UNKNOWN
     Route: 048
     Dates: start: 20221112

REACTIONS (2)
  - Insomnia [Unknown]
  - Drug effective for unapproved indication [None]

NARRATIVE: CASE EVENT DATE: 20221112
